FAERS Safety Report 9825016 (Version 1)
Quarter: 2014Q1

REPORT INFORMATION
  Report Type: Spontaneous
  Country: US (occurrence: None)
  Receive Date: 20140115
  Receipt Date: 20140115
  Transmission Date: 20141002
  Serious: No
  Sender: FDA-Public Use
  Company Number: None

PATIENT
  Age: 47 Year
  Sex: Male
  Weight: 96.1 kg

DRUGS (4)
  1. SERTRALINE [Suspect]
     Indication: DEPRESSION
     Route: 048
     Dates: start: 20121120, end: 20140107
  2. SERTRALINE [Suspect]
     Route: 048
     Dates: start: 20121120, end: 20140107
  3. QUETIAPINE [Suspect]
     Route: 048
     Dates: start: 20131224
  4. QUETIAPINE [Suspect]
     Route: 048
     Dates: start: 20131224

REACTIONS (3)
  - Anger [None]
  - Irritability [None]
  - Morbid thoughts [None]
